FAERS Safety Report 10233687 (Version 2)
Quarter: 2014Q2

REPORT INFORMATION
  Report Type: Spontaneous
  Country: MX (occurrence: MX)
  Receive Date: 20140612
  Receipt Date: 20140630
  Transmission Date: 20141212
  Serious: Yes (Other)
  Sender: FDA-Public Use
  Company Number: MX-PFIZER INC-2014159835

PATIENT
  Age: 29 Year
  Sex: Female
  Weight: 57 kg

DRUGS (3)
  1. VIBRAMICINA [Suspect]
     Indication: POST ABORTION INFECTION
     Dosage: 100 MG, 2X/DAY
     Route: 048
     Dates: start: 20140605, end: 20140614
  2. BUTILHIOSCINA COMPUESTA [Concomitant]
     Indication: ABDOMINAL PAIN
     Dosage: 10/250 MG
     Route: 048
     Dates: start: 20140530, end: 20140605
  3. ETONOGESTREL [Concomitant]
     Indication: CONTRACEPTIVE IMPLANT
     Dosage: UNK
     Route: 059
     Dates: start: 20140530

REACTIONS (4)
  - Haematemesis [Recovered/Resolved]
  - Nausea [Recovered/Resolved]
  - Abdominal pain [Recovering/Resolving]
  - Headache [Recovered/Resolved]
